FAERS Safety Report 6441082-5 (Version None)
Quarter: 2009Q4

REPORT INFORMATION
  Report Type: 
  Country: None (occurrence: None)
  Receive Date: 20091116
  Receipt Date: 20091106
  Transmission Date: 20100525
  Serious: Yes (Hospitalization, Disabling)
  Sender: FDA-Public Use
  Company Number: FI-ROCHE-667628

PATIENT
  Sex: Male

DRUGS (2)
  1. XELODA [Suspect]
     Dosage: FREQUENCY:CAPECITABINE FOR 14 DAYS FOLLOWED BYA 7 DAY REST PERIOD (TOTAL DAILY DOSE NOT PROVIDED)
     Route: 048
     Dates: start: 20090204, end: 20090913
  2. OXALIPLATIN [Concomitant]

REACTIONS (6)
  - AMNESIA [None]
  - CONFUSIONAL STATE [None]
  - GAIT DISTURBANCE [None]
  - TOXIC ENCEPHALOPATHY [None]
  - VOMITING [None]
  - WERNICKE'S ENCEPHALOPATHY [None]
